FAERS Safety Report 5949625-2 (Version None)
Quarter: 2008Q4

REPORT INFORMATION
  Report Type: 
  Country: None (occurrence: None)
  Receive Date: 20081112
  Receipt Date: 20081028
  Transmission Date: 20090506
  Serious: Yes (Other)
  Sender: FDA-Public Use
  Company Number: US-JNJFOC-20081007254

PATIENT
  Sex: Male
  Weight: 74.84 kg

DRUGS (14)
  1. DURAGESIC-100 [Suspect]
     Route: 062
  2. DURAGESIC-100 [Suspect]
     Indication: BACK PAIN
     Route: 062
  3. LOPID [Concomitant]
     Indication: BLOOD PRESSURE
     Route: 048
  4. LOPID [Concomitant]
     Indication: BLOOD CHOLESTEROL
     Route: 048
  5. ARICEPT [Concomitant]
     Indication: DEMENTIA ALZHEIMER'S TYPE
     Route: 048
  6. NEUCONTIN [Concomitant]
     Indication: RESTLESS LEGS SYNDROME
     Route: 048
  7. LORTAB [Concomitant]
     Indication: BREAKTHROUGH PAIN
     Route: 048
  8. ATIVAN [Concomitant]
     Indication: ANXIETY
     Dosage: UNKNOWN/TABLET/EVERY 3 TO 4HRS/ORAL
     Route: 048
  9. TOPROL-XL [Concomitant]
     Indication: BLOOD PRESSURE
     Route: 048
  10. REMERM [Concomitant]
     Indication: ANTIDEPRESSANT THERAPY
     Route: 048
  11. PRILOSEC [Concomitant]
     Indication: ULCER
     Route: 048
  12. PREDNISONE TAB [Concomitant]
     Indication: ARTHRITIS
     Route: 048
  13. SYNTHROID [Concomitant]
     Indication: HYPERTHYROIDISM
     Route: 048
  14. MAXZIDE [Concomitant]
     Indication: BLOOD PRESSURE
     Route: 048

REACTIONS (5)
  - CONFUSIONAL STATE [None]
  - GLAUCOMA [None]
  - HERPES ZOSTER [None]
  - NAUSEA [None]
  - PAIN [None]
